FAERS Safety Report 8376561-7 (Version None)
Quarter: 2012Q1

REPORT INFORMATION
  Report Type: 
  Country: None (occurrence: None)
  Receive Date: 20120323
  Receipt Date: 20111017
  Transmission Date: 20120608
  Serious: Yes (Other)
  Sender: FDA-Public Use
  Company Number: 163-21880-10121798

PATIENT
  Age: 71 Year
  Sex: Male

DRUGS (4)
  1. REVLIMID [Suspect]
     Indication: MULTIPLE MYELOMA
     Dosage: 25 MG, 1 IN 1 D, PO
     Route: 048
     Dates: start: 20101101, end: 20101214
  2. FENTANYL-100 [Concomitant]
  3. DILAUDID [Concomitant]
  4. ASPIRIN [Concomitant]

REACTIONS (3)
  - PRURITUS [None]
  - HERPES ZOSTER [None]
  - FACE OEDEMA [None]
